FAERS Safety Report 9339086 (Version 1)
Quarter: 2013Q2

REPORT INFORMATION
  Report Type: Report from Study
  Country: DE (occurrence: DE)
  Receive Date: 20130610
  Receipt Date: 20130610
  Transmission Date: 20140414
  Serious: Yes (Disabling)
  Sender: FDA-Public Use
  Company Number: DE-CELGENEUS-062-21660-13054789

PATIENT
  Age: 77 Year
  Sex: Female
  Weight: 84 kg

DRUGS (5)
  1. ABRAXANE [Suspect]
     Indication: BREAST CANCER
     Route: 041
     Dates: start: 20130313, end: 20130403
  2. ABRAXANE [Suspect]
     Route: 041
     Dates: start: 20130410
  3. XELODA [Suspect]
     Indication: BREAST CANCER
     Dosage: 4000 MILLIGRAM
     Route: 048
     Dates: start: 20130313, end: 20130403
  4. XELODA [Suspect]
     Dosage: 4000 MILLIGRAM
     Route: 048
     Dates: start: 20130410
  5. XELODA [Suspect]
     Route: 048
     Dates: start: 20130517, end: 20130526

REACTIONS (1)
  - Palmar-plantar erythrodysaesthesia syndrome [Not Recovered/Not Resolved]
